FAERS Safety Report 14309671 (Version 2)
Quarter: 2018Q1

REPORT INFORMATION
  Report Type: Report from Study
  Country: US (occurrence: US)
  Receive Date: 20171220
  Receipt Date: 20180126
  Transmission Date: 20180509
  Serious: Yes (Death, Hospitalization)
  Sender: FDA-Public Use
  Company Number: US-BAYER-2017-204217

PATIENT
  Age: 87 Year
  Sex: Male

DRUGS (2)
  1. XOFIGO [Suspect]
     Active Substance: RADIUM RA-223 DICHLORIDE
     Indication: HORMONE-REFRACTORY PROSTATE CANCER
     Dosage: 84 UCI, ONCE EVERY 28 DAYS
     Route: 042
     Dates: start: 20170920, end: 20170920
  2. XOFIGO [Suspect]
     Active Substance: RADIUM RA-223 DICHLORIDE
     Indication: METASTASES TO BONE
     Dosage: UNK
     Route: 042
     Dates: start: 20171116, end: 20171116

REACTIONS (3)
  - Malaise [None]
  - Transfusion [None]
  - Death [Fatal]

NARRATIVE: CASE EVENT DATE: 20171020
